FAERS Safety Report 11737529 (Version 1)
Quarter: 2015Q4

REPORT INFORMATION
  Report Type: Spontaneous
  Country: US (occurrence: US)
  Receive Date: 20151110
  Receipt Date: 20151110
  Transmission Date: 20160304
  Serious: No
  Sender: FDA-Public Use
  Company Number: US-ELI_LILLY_AND_COMPANY-US201205009650

PATIENT
  Sex: Female

DRUGS (2)
  1. FORTEO [Suspect]
     Active Substance: TERIPARATIDE
     Indication: OSTEOPOROSIS
     Dosage: 20 UG, QD
     Dates: start: 201202
  2. FORTEO [Suspect]
     Active Substance: TERIPARATIDE
     Dosage: 20 UG, QD
     Dates: start: 2012, end: 201206

REACTIONS (9)
  - Wrist fracture [Recovered/Resolved]
  - Malaise [Unknown]
  - Memory impairment [Unknown]
  - Medication error [Unknown]
  - Influenza [Unknown]
  - Abdominal distension [Unknown]
  - Fat tissue increased [Unknown]
  - Accidental overdose [Unknown]
  - Fall [Recovered/Resolved]
